FAERS Safety Report 17718545 (Version 1)
Quarter: 2020Q2

REPORT INFORMATION
  Report Type: Report from Study
  Country: US (occurrence: US)
  Receive Date: 20200428
  Receipt Date: 20200428
  Transmission Date: 20200714
  Serious: Yes (Other)
  Sender: FDA-Public Use
  Company Number: US-ROCHE-2590923

PATIENT
  Age: 18 Year
  Sex: Female

DRUGS (1)
  1. ALTEPLASE. [Suspect]
     Active Substance: ALTEPLASE
     Indication: CEREBRAL VENOUS SINUS THROMBOSIS
     Route: 042

REACTIONS (1)
  - Drug ineffective [Unknown]
